FAERS Safety Report 11741522 (Version 2)
Quarter: 2015Q4

REPORT INFORMATION
  Report Type: Spontaneous
  Country: RO (occurrence: RO)
  Receive Date: 20151116
  Receipt Date: 20151130
  Transmission Date: 20160304
  Serious: Yes (Other)
  Sender: FDA-Public Use
  Company Number: PHHY2015RO148122

PATIENT
  Age: 81 Year
  Sex: Female

DRUGS (1)
  1. ZOLEDRONATE [Suspect]
     Active Substance: ZOLEDRONIC ACID
     Indication: OSTEITIS DEFORMANS
     Dosage: 1 EVP EVERY FEW MONTHS
     Route: 042
     Dates: end: 201502

REACTIONS (3)
  - Multi-organ failure [Unknown]
  - Osteonecrosis of jaw [Recovered/Resolved]
  - Sepsis [Unknown]

NARRATIVE: CASE EVENT DATE: 201502
